FAERS Safety Report 14885827 (Version 1)
Quarter: 2018Q2

REPORT INFORMATION
  Report Type: Report from Study
  Country: DE (occurrence: DE)
  Receive Date: 20180512
  Receipt Date: 20180512
  Transmission Date: 20180711
  Serious: Yes (Other)
  Sender: FDA-Public Use
  Company Number: DE-ROCHE-1829876

PATIENT
  Sex: Male
  Weight: 73 kg

DRUGS (4)
  1. RANIBIZUMAB. [Suspect]
     Active Substance: RANIBIZUMAB
     Indication: NEOVASCULAR AGE-RELATED MACULAR DEGENERATION
     Dosage: 0.5 MG, LEFT EYE, 1 X
     Route: 031
     Dates: start: 20160421
  2. RANIBIZUMAB. [Suspect]
     Active Substance: RANIBIZUMAB
     Dosage: 0.5 MG, RIGHT EYE, 1 X
     Route: 031
     Dates: start: 20160906, end: 20160906
  3. RANIBIZUMAB. [Suspect]
     Active Substance: RANIBIZUMAB
     Dosage: 0.5 MG, LEFT EYE, 1 X
     Route: 031
     Dates: start: 20160519
  4. RANIBIZUMAB. [Suspect]
     Active Substance: RANIBIZUMAB
     Dosage: 0.5 MG, LEFT EYE, 1 X
     Route: 031
     Dates: start: 20160621, end: 20160621

REACTIONS (2)
  - Age-related macular degeneration [Not Recovered/Not Resolved]
  - Visual impairment [Not Recovered/Not Resolved]

NARRATIVE: CASE EVENT DATE: 20160906
